FAERS Safety Report 5809037-9 (Version None)
Quarter: 2008Q3

REPORT INFORMATION
  Report Type: 
  Country: None (occurrence: None)
  Receive Date: 20080710
  Receipt Date: 20080710
  Transmission Date: 20090109
  Serious: Yes (Life-Threatening)
  Sender: FDA-Public Use
  Company Number: None

PATIENT
  Age: 57 Year
  Sex: Female
  Weight: 83.9154 kg

DRUGS (2)
  1. CIPRO [Suspect]
     Indication: CYSTITIS
     Dosage: 2 A DAY
     Dates: start: 20071020, end: 20071025
  2. CIPRO [Suspect]
     Indication: CYSTITIS
     Dosage: 2 A DAY
     Dates: start: 20080125, end: 20080201

REACTIONS (3)
  - EPISTAXIS [None]
  - HAEMORRHAGE [None]
  - TENDONITIS [None]
